FAERS Safety Report 23797773 (Version 2)
Quarter: 2024Q2

REPORT INFORMATION
  Report Type: Report from Study
  Country: ES (occurrence: ES)
  Receive Date: 20240430
  Receipt Date: 20240627
  Transmission Date: 20240715
  Serious: Yes (Other)
  Sender: FDA-Public Use
  Company Number: ES-002147023-NVSC2024ES088427

PATIENT
  Age: 6 Year
  Sex: Male

DRUGS (4)
  1. VIJOICE [Suspect]
     Active Substance: ALPELISIB
     Indication: PIK3CA related overgrowth spectrum
     Dosage: 50 MG
     Route: 048
  2. VIJOICE [Suspect]
     Active Substance: ALPELISIB
     Dosage: 100 MG (AT 12 MONTHS RAISE AT 100MG)
     Route: 048
     Dates: start: 20191030
  3. VIJOICE [Suspect]
     Active Substance: ALPELISIB
     Dosage: 150 MG (AT 24 MONTHS RAISE AT 150MG)
     Route: 048
  4. VIJOICE [Suspect]
     Active Substance: ALPELISIB
     Dosage: 200 MG
     Route: 048

REACTIONS (3)
  - Growth retardation [Recovered/Resolved]
  - Diarrhoea [Recovered/Resolved]
  - Diarrhoea [Recovered/Resolved]

NARRATIVE: CASE EVENT DATE: 20210203
